FAERS Safety Report 4334723-X (Version None)
Quarter: 2004Q2

REPORT INFORMATION
  Report Type: 
  Country: None (occurrence: None)
  Receive Date: 20040405
  Receipt Date: 20040326
  Transmission Date: 20050107
  Serious: Yes (Other)
  Sender: FDA-Public Use
  Company Number: US-JNJFOC-20030805429

PATIENT
  Age: 69 Year
  Sex: Male
  Weight: 79.3795 kg

DRUGS (14)
  1. LEVAQUIN [Suspect]
     Indication: URINARY TRACT INFECTION
     Dosage: 500 MG
     Dates: start: 20030716, end: 20030726
  2. SULFAMETHAZOLE (KELFIPRIM) [Concomitant]
  3. SIMVASTATIN [Concomitant]
  4. TERAZOSIN HCL [Concomitant]
  5. RABEPRAZOLE SODIUM [Concomitant]
  6. TRAVASOL 10% [Concomitant]
  7. FOSINOPRIL SODIUM [Concomitant]
  8. ACETYLSALICYLIC ACID SRT [Concomitant]
  9. LOTENSIN [Concomitant]
  10. PROTONIX [Concomitant]
  11. EFFUDEX (CELECOXIB) [Concomitant]
  12. LIPITOR [Concomitant]
  13. CARDIZEM [Concomitant]
  14. HYDROCHLOROTHIAZIDE [Concomitant]

REACTIONS (3)
  - DEAFNESS [None]
  - EAR PAIN [None]
  - TINNITUS [None]
